FAERS Safety Report 11999130 (Version 1)
Quarter: 2016Q1

REPORT INFORMATION
  Report Type: Spontaneous
  Country: KR (occurrence: KR)
  Receive Date: 20160204
  Receipt Date: 20160204
  Transmission Date: 20160526
  Serious: Yes (Hospitalization)
  Sender: FDA-Public Use
  Company Number: KR-AMGEN-KORCT2016012292

PATIENT
  Age: 57 Year
  Sex: Female
  Weight: 64.2 kg

DRUGS (15)
  1. DOCETAXEL. [Concomitant]
     Active Substance: DOCETAXEL
     Dosage: 124 MG, UNK
     Route: 042
     Dates: start: 20151205, end: 20151205
  2. TOBRAMYCIN. [Concomitant]
     Active Substance: TOBRAMYCIN
     Dosage: 200 MG, UNK
     Route: 042
     Dates: start: 20151211, end: 20151211
  3. DOCETAXEL. [Concomitant]
     Active Substance: DOCETAXEL
     Dosage: 124 MG, UNK
     Route: 042
     Dates: start: 20160116, end: 20160116
  4. CYCLOPHOSPHAMIDE. [Concomitant]
     Active Substance: CYCLOPHOSPHAMIDE
     Dosage: 830 MG, UNK
     Route: 042
     Dates: start: 20160116, end: 20160116
  5. G-LASTA [Suspect]
     Active Substance: PEGFILGRASTIM
     Indication: FEBRILE NEUTROPENIA
     Dosage: 6 MG, Q3WK
     Route: 058
     Dates: start: 20151206
  6. DOCETAXEL. [Concomitant]
     Active Substance: DOCETAXEL
     Dosage: 124 MG, UNK
     Route: 042
     Dates: start: 20151226, end: 20151226
  7. DOXORUBICIN [Concomitant]
     Active Substance: DOXORUBICIN
     Dosage: 83 MG, UNK
     Route: 042
     Dates: start: 20151205, end: 20151205
  8. G-LASTA [Suspect]
     Active Substance: PEGFILGRASTIM
     Dosage: 6 MG, Q3WK
     Route: 058
     Dates: start: 20160117
  9. CYCLOPHOSPHAMIDE. [Concomitant]
     Active Substance: CYCLOPHOSPHAMIDE
     Dosage: 830 MG, UNK
     Route: 042
     Dates: start: 20151226, end: 20151226
  10. DOXORUBICIN [Concomitant]
     Active Substance: DOXORUBICIN
     Dosage: 83 MG, UNK
     Route: 042
     Dates: start: 20160116, end: 20160116
  11. CYCLOPHOSPHAMIDE. [Concomitant]
     Active Substance: CYCLOPHOSPHAMIDE
     Dosage: 830 MG, UNK
     Route: 042
     Dates: start: 20151205, end: 20151205
  12. FILGRASTIM [Concomitant]
     Active Substance: FILGRASTIM
     Dosage: 150 MUG, UNK
     Route: 058
     Dates: start: 20151211, end: 20151211
  13. CEFOBACTAM [Concomitant]
     Active Substance: CEFOPERAZONE SODIUM\SULBACTAM SODIUM
     Dosage: 2 G, UNK
     Route: 042
     Dates: start: 20151211, end: 20151211
  14. DOXORUBICIN [Concomitant]
     Active Substance: DOXORUBICIN
     Dosage: 83 MG, UNK
     Route: 042
     Dates: start: 20151226, end: 20151226
  15. G-LASTA [Suspect]
     Active Substance: PEGFILGRASTIM
     Dosage: 6 MG, Q3WK
     Route: 058
     Dates: start: 20151227

REACTIONS (1)
  - Neutropenia [Recovered/Resolved]

NARRATIVE: CASE EVENT DATE: 20160122
